FAERS Safety Report 23516242 (Version 1)
Quarter: 2024Q1

REPORT INFORMATION
  Report Type: Spontaneous
  Country: JP (occurrence: JP)
  Receive Date: 20240213
  Receipt Date: 20240213
  Transmission Date: 20240410
  Serious: Yes (Other)
  Sender: FDA-Public Use
  Company Number: JP-PHATHOM PHARMACEUTICALS INC.-2024PHT00042

PATIENT
  Age: 70 Year
  Sex: Female

DRUGS (7)
  1. VONOPRAZAN FUMARATE [Suspect]
     Active Substance: VONOPRAZAN FUMARATE
     Indication: Gastrooesophageal reflux disease
     Dosage: 20 MG
     Route: 048
     Dates: start: 20191130
  2. VONOPRAZAN FUMARATE [Suspect]
     Active Substance: VONOPRAZAN FUMARATE
     Dosage: 10 MG
     Route: 048
     Dates: start: 202004
  3. VONOPRAZAN FUMARATE [Suspect]
     Active Substance: VONOPRAZAN FUMARATE
     Dosage: 20 MG
     Route: 048
  4. ZETIA [Concomitant]
     Active Substance: EZETIMIBE
  5. SULPIRIDE [Concomitant]
     Active Substance: SULPIRIDE
  6. ELDECALCITOL [Concomitant]
     Active Substance: ELDECALCITOL
  7. PRAVASTATIN SODIUM [Concomitant]
     Active Substance: PRAVASTATIN SODIUM

REACTIONS (6)
  - Meniscus injury [Unknown]
  - Dizziness [Unknown]
  - Paraesthesia oral [Unknown]
  - Feeling abnormal [Unknown]
  - Vomiting [Unknown]
  - Nausea [Unknown]

NARRATIVE: CASE EVENT DATE: 20200101
